FAERS Safety Report 5594552-6 (Version None)
Quarter: 2008Q1

REPORT INFORMATION
  Report Type: 
  Country: None (occurrence: None)
  Receive Date: 20080117
  Receipt Date: 20080107
  Transmission Date: 20080703
  Serious: Yes (Death)
  Sender: FDA-Public Use
  Company Number: US-WYE-H02046708

PATIENT
  Age: 83 Year
  Sex: Female

DRUGS (4)
  1. AMIODARONE HCL [Suspect]
     Dosage: UNSPECIFIED
  2. ALPRAZOLAM [Suspect]
     Dosage: UNSPECIFIED
  3. ATORVASTATIN [Suspect]
     Dosage: UNSPECIFIED
  4. FLUOXETINE [Suspect]
     Dosage: UNSPECIFIED

REACTIONS (1)
  - INTENTIONAL OVERDOSE [None]
